FAERS Safety Report 7396712-0 (Version None)
Quarter: 2011Q2

REPORT INFORMATION
  Report Type: 
  Country: None (occurrence: None)
  Receive Date: 20110406
  Receipt Date: 20110325
  Transmission Date: 20111010
  Serious: Yes (Hospitalization)
  Sender: FDA-Public Use
  Company Number: US-BAYER-2011-026488

PATIENT
  Sex: Female

DRUGS (1)
  1. MIRENA [Suspect]
     Indication: MENORRHAGIA
     Dosage: 20 MCG/24H
     Route: 015
     Dates: start: 20091001, end: 20101001

REACTIONS (4)
  - DYSPNOEA [None]
  - CHEST PAIN [None]
  - PULMONARY THROMBOSIS [None]
  - WEIGHT INCREASED [None]
